FAERS Safety Report 12269568 (Version 1)
Quarter: 2016Q2

REPORT INFORMATION
  Report Type: Spontaneous
  Country: JP (occurrence: JP)
  Receive Date: 20160414
  Receipt Date: 20160414
  Transmission Date: 20160815
  Serious: Yes (Other)
  Sender: FDA-Public Use
  Company Number: JP-WATSON-2016-07798

PATIENT
  Age: 35 Year
  Sex: Male

DRUGS (5)
  1. GIMERACIL W/OTERACIL POTASSIUM/TEGAFUR [Suspect]
     Active Substance: GIMERACIL\OTERACIL\TEGAFUR
     Indication: GASTRIC CANCER
     Dosage: FOR 21 DAYS
     Route: 048
  2. CYTARABINE (UNKNOWN) [Suspect]
     Active Substance: CYTARABINE
     Indication: METASTASES TO MENINGES
     Dosage: TWICE A WEEK FOR THE FIRST TWO WEEKS, AND THEN REPEATED ONCE A WEEK THEREAFTER
     Route: 037
  3. METHOTREXATE (METHOTREXATE SODIUM) [Suspect]
     Active Substance: METHOTREXATE SODIUM
     Indication: METASTASES TO MENINGES
     Dosage: TWICE A WEEK FOR THE FIRST TWO WEEKS, AND THEN REPEATED ONCE A WEEK THEREAFTER
     Route: 037
  4. CISPLATIN (UNKNOWN) [Suspect]
     Active Substance: CISPLATIN
     Indication: GASTRIC CANCER
     Dosage: ON THE EIGHTH DAY
     Route: 042
  5. PREDNISOLONE (UNKNOWN) [Suspect]
     Active Substance: PREDNISOLONE
     Indication: METASTASES TO MENINGES
     Dosage: TWICE A WEEK FOR THE FIRST TWO WEEKS, AND THEN REPEATED ONCE A WEEK THEREAFTER
     Route: 037

REACTIONS (2)
  - Leukoencephalopathy [Unknown]
  - Renal disorder [Unknown]
